FAERS Safety Report 10305779 (Version 8)
Quarter: 2014Q4

REPORT INFORMATION
  Report Type: Spontaneous
  Country: US (occurrence: US)
  Receive Date: 20140715
  Receipt Date: 20141222
  Transmission Date: 20150528
  Serious: Yes (Life-Threatening, Hospitalization)
  Sender: FDA-Public Use
  Company Number: US-ACTELION-A-NJ2014-97055

PATIENT
  Age: 61 Year
  Sex: Female

DRUGS (4)
  1. RIOCIGUAT [Concomitant]
     Active Substance: RIOCIGUAT
     Dosage: 0.5 MG, UNK
  2. TRACLEER [Suspect]
     Active Substance: BOSENTAN\BOSENTAN MONOHYDRATE
     Dosage: UNK
     Route: 048
  3. COUMADIN [Concomitant]
     Active Substance: WARFARIN SODIUM
  4. TRACLEER [Suspect]
     Active Substance: BOSENTAN\BOSENTAN MONOHYDRATE
     Indication: PULMONARY ARTERIAL HYPERTENSION
     Dosage: 125 MG, BID
     Route: 048
     Dates: start: 2004

REACTIONS (23)
  - Sinus disorder [Unknown]
  - Dizziness [Unknown]
  - Biliary colic [Recovering/Resolving]
  - Vomiting [Recovering/Resolving]
  - Packed red blood cell transfusion [Unknown]
  - Diarrhoea [Unknown]
  - Oedema [Unknown]
  - Cellulitis [Unknown]
  - Abdominal pain [Unknown]
  - Intra-abdominal haematoma [Recovering/Resolving]
  - Hypotension [Unknown]
  - Decreased appetite [Unknown]
  - Haemoglobin decreased [Unknown]
  - Malaise [Unknown]
  - Blood pressure abnormal [Unknown]
  - Weight increased [Unknown]
  - Abdominal wall haemorrhage [Unknown]
  - Headache [Unknown]
  - Fatigue [Unknown]
  - Cholecystectomy [Recovered/Resolved]
  - Cholelithiasis [Unknown]
  - Transfusion [Unknown]
  - Nausea [Unknown]

NARRATIVE: CASE EVENT DATE: 20140707
